FAERS Safety Report 23675222 (Version 1)
Quarter: 2024Q1

REPORT INFORMATION
  Report Type: Spontaneous
  Country: CN (occurrence: None)
  Receive Date: 20240326
  Receipt Date: 20240326
  Transmission Date: 20240410
  Serious: Yes (Other)
  Sender: FDA-Public Use
  Company Number: CN-Encube-000644

PATIENT
  Age: 9 Year
  Sex: Male

DRUGS (7)
  1. TRETINOIN [Suspect]
     Active Substance: TRETINOIN
     Indication: Acute promyelocytic leukaemia
     Dosage: FIRST CYCLE, DAYS 1-28
  2. VENETOCLAX [Concomitant]
     Active Substance: VENETOCLAX
     Indication: Acute promyelocytic leukaemia
     Dosage: FIRST CYCLE, DAYS 1-28
  3. AZACITIDINE [Concomitant]
     Active Substance: AZACITIDINE
     Indication: Acute promyelocytic leukaemia
     Dosage: DAYS 1-5
  4. ARSENIC TRIOXIDE [Concomitant]
     Active Substance: ARSENIC TRIOXIDE
     Indication: Acute promyelocytic leukaemia
     Dosage: DAYS 1-14
  5. TRETINOIN [Suspect]
     Active Substance: TRETINOIN
     Indication: Acute promyelocytic leukaemia
     Dosage: SECOND CYCLE, DAYS 1-14
  6. TRETINOIN [Suspect]
     Active Substance: TRETINOIN
     Indication: Acute promyelocytic leukaemia
     Dosage: DAYS 1-14
  7. VENETOCLAX [Concomitant]
     Active Substance: VENETOCLAX
     Indication: Acute promyelocytic leukaemia
     Dosage: SECOND CYCLE, DAYS 1-28

REACTIONS (3)
  - Drug resistance mutation [Unknown]
  - Acute myeloid leukaemia recurrent [Unknown]
  - Off label use [Unknown]
